FAERS Safety Report 7892110 (Version 4)
Quarter: 2013Q1

REPORT INFORMATION
  Report Type: Report from Study
  Country: US (occurrence: US)
  Receive Date: 20110408
  Receipt Date: 20130109
  Transmission Date: 20140127
  Serious: Yes (Other)
  Sender: FDA-Public Use
  Company Number: PHHO2011US05149

PATIENT
  Age: 83 Year
  Sex: Female
  Weight: 60.6 kg

DRUGS (8)
  1. EXELON [Suspect]
     Indication: DEMENTIA ALZHEIMER^S TYPE
     Dosage: 1 DF, (5 CM^2)
     Route: 062
     Dates: start: 20110308, end: 20110311
  2. EXELON [Suspect]
     Dosage: 1 DF, (5 CM^2)
     Route: 062
     Dates: start: 20110314, end: 20110903
  3. SIMVASTATIN [Concomitant]
     Indication: HYPERCHOLESTEROLAEMIA
  4. AZATHIOPRINE [Concomitant]
     Indication: MYASTHENIA GRAVIS
  5. LEVOTHYROXINE [Concomitant]
     Indication: HYPOTHYROIDISM
  6. LOSARTAN POTASSIUM W/HYDROCHLOROTHIAZIDE [Concomitant]
     Indication: HYPERTENSION
  7. PRISTIQ [Concomitant]
     Indication: DEPRESSION
  8. FOSAMAX [Concomitant]
     Indication: OSTEOPOROSIS

REACTIONS (1)
  - Wrong technique in drug usage process [Recovered/Resolved]
